FAERS Safety Report 8451451-X (Version None)
Quarter: 2012Q2

REPORT INFORMATION
  Report Type: 
  Country: None (occurrence: None)
  Receive Date: 20120620
  Receipt Date: 20120422
  Transmission Date: 20120825
  Serious: No
  Sender: FDA-Public Use
  Company Number: US-VERTEX PHARMACEUTICALS INC.-AE-2012-003026

PATIENT
  Sex: Female
  Weight: 71.732 kg

DRUGS (11)
  1. OMEPRAZOLE [Concomitant]
     Route: 048
  2. SPIRONOLACTONE [Concomitant]
     Route: 048
  3. PEGASYS [Concomitant]
     Route: 058
     Dates: start: 20120301
  4. PHENERGAN [Concomitant]
     Indication: NAUSEA
     Route: 048
  5. ROXICODONE [Concomitant]
     Indication: PAIN
     Route: 048
  6. INCIVEK [Suspect]
     Indication: HEPATITIS C
     Route: 048
     Dates: start: 20120227
  7. MORPHINE SULFATE [Concomitant]
     Route: 048
  8. RIBAVIRIN [Concomitant]
     Indication: HEPATITIS C
     Route: 048
     Dates: start: 20120227, end: 20120418
  9. PEGASYS [Concomitant]
     Indication: HEPATITIS C
     Dates: start: 20120227, end: 20120301
  10. RIBAVIRIN [Concomitant]
     Route: 048
     Dates: start: 20120419
  11. MORPHINE SULFATE [Concomitant]
     Indication: PAIN
     Route: 048

REACTIONS (8)
  - TINNITUS [None]
  - FATIGUE [None]
  - RASH ERYTHEMATOUS [None]
  - PRURITUS [None]
  - APPETITE DISORDER [None]
  - MEMORY IMPAIRMENT [None]
  - ANAEMIA [None]
  - INAPPROPRIATE SCHEDULE OF DRUG ADMINISTRATION [None]
